FAERS Safety Report 7506578-3 (Version None)
Quarter: 2011Q2

REPORT INFORMATION
  Report Type: 
  Country: None (occurrence: None)
  Receive Date: 20110526
  Receipt Date: 20110523
  Transmission Date: 20111010
  Serious: Yes (Hospitalization, Disabling, Other)
  Sender: FDA-Public Use
  Company Number: US-PFIZER INC-2011003881

PATIENT
  Sex: Male

DRUGS (9)
  1. WARFARIN [Concomitant]
     Indication: CARDIAC DISORDER
     Dosage: UNK
     Dates: start: 20060101
  2. CHANTIX [Suspect]
     Indication: SMOKING CESSATION THERAPY
     Dosage: 0.5/1MG
     Dates: start: 20071204, end: 20080104
  3. NORVASC [Concomitant]
     Indication: BLOOD PRESSURE
     Dosage: UNK
     Dates: start: 20000101
  4. POTASSIUM CHLORIDE [Concomitant]
     Indication: POLYURIA
     Dosage: UNK
     Dates: start: 20060101
  5. ZOCOR [Concomitant]
     Indication: BLOOD PRESSURE
     Dosage: UNK
     Dates: start: 20060101
  6. NORVASC [Concomitant]
     Indication: BLOOD CHOLESTEROL
  7. CRESTOR [Concomitant]
     Indication: BLOOD CHOLESTEROL
  8. ZOCOR [Concomitant]
     Indication: BLOOD CHOLESTEROL
  9. CRESTOR [Concomitant]
     Indication: BLOOD PRESSURE
     Dosage: UNK
     Dates: start: 20070101

REACTIONS (6)
  - DEPRESSION [None]
  - CONFUSIONAL STATE [None]
  - CEREBROVASCULAR ACCIDENT [None]
  - CONVULSION [None]
  - BLINDNESS UNILATERAL [None]
  - MENTAL STATUS CHANGES [None]
